FAERS Safety Report 16992247 (Version 1)
Quarter: 2019Q4

REPORT INFORMATION
  Report Type: Spontaneous
  Country: US (occurrence: US)
  Receive Date: 20191104
  Receipt Date: 20191104
  Transmission Date: 20200122
  Serious: Yes (Life-Threatening, Hospitalization, Disabling)
  Sender: FDA-Public Use
  Company Number: None

PATIENT
  Age: 68 Year
  Sex: Male
  Weight: 90 kg

DRUGS (9)
  1. MULTI VITAMIN [Concomitant]
     Active Substance: VITAMINS
  2. ENTYVIO [Suspect]
     Active Substance: VEDOLIZUMAB
     Indication: CROHN^S DISEASE
     Dosage: ?          OTHER FREQUENCY:ONCE PER MONTH;?
     Route: 042
     Dates: start: 20190418, end: 20190530
  3. DENOSUMAB [Concomitant]
     Active Substance: DENOSUMAB
  4. TESTOSERONE GEL [Concomitant]
  5. FISH OIL [Concomitant]
     Active Substance: FISH OIL
  6. ENTYVIO [Suspect]
     Active Substance: VEDOLIZUMAB
     Indication: COLITIS ULCERATIVE
     Dosage: ?          OTHER FREQUENCY:ONCE PER MONTH;?
     Route: 042
     Dates: start: 20190418, end: 20190530
  7. PREDNISOLONE 60 MG [Concomitant]
  8. PROLIA [Concomitant]
     Active Substance: DENOSUMAB
  9. CALCIUM W/D3 [Concomitant]

REACTIONS (1)
  - Organising pneumonia [None]

NARRATIVE: CASE EVENT DATE: 20190630
